FAERS Safety Report 25227852 (Version 3)
Quarter: 2025Q2

REPORT INFORMATION
  Report Type: Spontaneous
  Country: JP (occurrence: JP)
  Receive Date: 20250423
  Receipt Date: 20250627
  Transmission Date: 20250717
  Serious: Yes (Life-Threatening, Hospitalization)
  Sender: ABBVIE
  Company Number: JP-ABBVIE-6121924

PATIENT
  Age: 43 Year
  Sex: Male
  Weight: 51 kg

DRUGS (3)
  1. RINVOQ [Suspect]
     Active Substance: UPADACITINIB
     Indication: Colitis ulcerative
     Dosage: 30 MILLIGRAM
     Route: 048
     Dates: start: 20230606
  2. RINVOQ [Suspect]
     Active Substance: UPADACITINIB
     Indication: Colitis ulcerative
     Dosage: 45 MILLIGRAM
     Route: 048
     Dates: start: 20230411, end: 20230605
  3. MESALAMINE [Concomitant]
     Active Substance: MESALAMINE
     Indication: Colitis ulcerative
     Route: 048

REACTIONS (7)
  - Colon cancer [Not Recovered/Not Resolved]
  - Miller Fisher syndrome [Recovered/Resolved]
  - Cough [Recovered/Resolved]
  - Balance disorder [Unknown]
  - Muscular weakness [Unknown]
  - Large intestinal obstruction [Unknown]
  - Infection [Unknown]

NARRATIVE: CASE EVENT DATE: 20230605
